FAERS Safety Report 7786397-3 (Version None)
Quarter: 2011Q3

REPORT INFORMATION
  Report Type: 
  Country: None (occurrence: None)
  Receive Date: 20110928
  Receipt Date: 20110928
  Transmission Date: 20111222
  Serious: Yes (Hospitalization)
  Sender: FDA-Public Use
  Company Number: None

PATIENT
  Age: 42 Year
  Sex: Male
  Weight: 65.73 kg

DRUGS (4)
  1. BLEOMYCIN SULFATE [Suspect]
     Indication: HODGKIN'S DISEASE
     Dosage: 1 UNIT ONCE IV 16.8 UNITS ONCE IV CYCLE 1 DAY 1
     Route: 042
     Dates: start: 20110426
  2. RIFAMPIN [Concomitant]
  3. ISONIAZID [Concomitant]
  4. VITAMIN B6 [Concomitant]

REACTIONS (2)
  - CHILLS [None]
  - INFUSION RELATED REACTION [None]
